FAERS Safety Report 16982652 (Version 1)
Quarter: 2019Q4

REPORT INFORMATION
  Report Type: Spontaneous
  Country: GB (occurrence: GB)
  Receive Date: 20191101
  Receipt Date: 20191101
  Transmission Date: 20200122
  Serious: Yes (Other)
  Sender: FDA-Public Use
  Company Number: GB-TEVA-2019-GB-1130355

PATIENT
  Age: 6 Year
  Sex: Male

DRUGS (1)
  1. MONTELUKAST [Suspect]
     Active Substance: MONTELUKAST SODIUM
     Indication: ASTHMA
     Dosage: 5 MG
     Route: 048
     Dates: start: 20180101, end: 20180801

REACTIONS (5)
  - Mood altered [Recovered/Resolved with Sequelae]
  - Anger [Unknown]
  - Aggression [Recovered/Resolved with Sequelae]
  - Anxiety [Unknown]
  - Emotional disorder [Recovered/Resolved with Sequelae]

NARRATIVE: CASE EVENT DATE: 20180201
